FAERS Safety Report 21283499 (Version 1)
Quarter: 2022Q3

REPORT INFORMATION
  Report Type: Spontaneous
  Country: US (occurrence: US)
  Receive Date: 20220901
  Receipt Date: 20220901
  Transmission Date: 20221027
  Serious: Yes (Hospitalization)
  Sender: FDA-Public Use
  Company Number: US-009507513-2208USA011565

PATIENT
  Sex: Female

DRUGS (2)
  1. KEYTRUDA [Suspect]
     Active Substance: PEMBROLIZUMAB
     Indication: Endometrial cancer
  2. LENVATINIB MESYLATE [Suspect]
     Active Substance: LENVATINIB MESYLATE
     Indication: Endometrial cancer
     Dosage: 14 MILLIGRAM
     Route: 048
     Dates: start: 20211019, end: 20220619

REACTIONS (7)
  - Blister [Recovering/Resolving]
  - Onychomadesis [Unknown]
  - Skin exfoliation [Unknown]
  - Swelling [Recovering/Resolving]
  - Skin discolouration [Recovering/Resolving]
  - Tongue blistering [Unknown]
  - Arthralgia [Unknown]
